FAERS Safety Report 23744905 (Version 2)
Quarter: 2024Q2

REPORT INFORMATION
  Report Type: Spontaneous
  Country: US (occurrence: US)
  Receive Date: 20240415
  Receipt Date: 20240520
  Transmission Date: 20240716
  Serious: Yes (Other)
  Sender: FDA-Public Use
  Company Number: US-BRISTOL-MYERS SQUIBB COMPANY-2024-056843

PATIENT
  Age: 80 Year
  Sex: Male
  Weight: 97.52 kg

DRUGS (1)
  1. REVLIMID [Suspect]
     Active Substance: LENALIDOMIDE
     Indication: Plasma cell myeloma
     Dosage: FREQUENCY: 2 WKS ON, 2 WKS OFF
     Route: 048

REACTIONS (4)
  - Lower limb fracture [Recovering/Resolving]
  - Off label use [Unknown]
  - Rib fracture [Unknown]
  - Fall [Unknown]
